FAERS Safety Report 17498469 (Version 3)
Quarter: 2020Q2

REPORT INFORMATION
  Report Type: Report from Study
  Country: US (occurrence: US)
  Receive Date: 20200304
  Receipt Date: 20200511
  Transmission Date: 20200713
  Serious: No
  Sender: FDA-Public Use
  Company Number: US-ALLERGAN-2009397US

PATIENT
  Age: 49 Year
  Sex: Female
  Weight: 76.1 kg

DRUGS (5)
  1. ADVIL [Concomitant]
     Active Substance: IBUPROFEN
     Indication: OSTEOARTHRITIS
     Dosage: ADVIL LIQUID GEL, 400 MG, PRN
     Route: 048
     Dates: start: 2015
  2. BLINDED CARIPRAZINE HCL 3MG CAP (TBD) [Suspect]
     Active Substance: CARIPRAZINE HYDROCHLORIDE
     Indication: BIPOLAR I DISORDER
     Dosage: UNK
     Dates: start: 20200220
  3. PLACEBO [Suspect]
     Active Substance: UNSPECIFIED INGREDIENT
     Indication: BIPOLAR I DISORDER
     Dosage: UNK
     Dates: start: 20200220
  4. IBUPROFEN. [Concomitant]
     Active Substance: IBUPROFEN
     Indication: OSTEOARTHRITIS
     Dosage: 400 MG, PRN
     Route: 048
     Dates: start: 2015
  5. BLINDED CARIPRAZINE HCL 1.5MG CAP (011327X) [Suspect]
     Active Substance: CARIPRAZINE HYDROCHLORIDE
     Indication: BIPOLAR I DISORDER
     Dosage: UNK
     Dates: start: 20200220

REACTIONS (1)
  - Cataract cortical [Unknown]

NARRATIVE: CASE EVENT DATE: 20200225
